FAERS Safety Report 9913643 (Version 1)
Quarter: 2014Q1

REPORT INFORMATION
  Report Type: Spontaneous
  Country: US (occurrence: None)
  Receive Date: 20140218
  Receipt Date: 20140218
  Transmission Date: 20141002
  Serious: Yes (Hospitalization)
  Sender: FDA-Public Use
  Company Number: None

PATIENT
  Age: 88 Year
  Sex: Female
  Weight: 84.37 kg

DRUGS (11)
  1. DACOGEN [Suspect]
     Indication: ACUTE MYELOID LEUKAEMIA
     Dosage: QDX10; 28 DAY CYCLE
     Dates: start: 20131004
  2. ACETAMINOPHEN [Concomitant]
  3. ACYCLOVIR [Concomitant]
  4. AMLODIPINE BESYLATE [Concomitant]
  5. CIPROFLOXACIN HCL [Concomitant]
  6. FAMOTIDINE [Concomitant]
  7. METOPROLOL SUCCINATE ER [Concomitant]
  8. PROCHLORPERAZINE MALEATE [Concomitant]
  9. TRAMADOL HCI [Concomitant]
  10. TUMS FRESHERS [Concomitant]
  11. VITAMIN D [Suspect]

REACTIONS (4)
  - Rhinorrhoea [None]
  - Oropharyngeal pain [None]
  - Asthenia [None]
  - Myalgia [None]
